FAERS Safety Report 6015951-4 (Version None)
Quarter: 2008Q4

REPORT INFORMATION
  Report Type: 
  Country: None (occurrence: None)
  Receive Date: 20081218
  Receipt Date: 20081204
  Transmission Date: 20090506
  Serious: Yes (Hospitalization)
  Sender: FDA-Public Use
  Company Number: 8037978

PATIENT
  Age: 47 Year
  Sex: Male
  Weight: 65.5 kg

DRUGS (2)
  1. KEPPRA [Suspect]
     Indication: EPILEPSY
     Dosage: 500 MG 2/ D PO
     Route: 048
     Dates: start: 20070701, end: 20071001
  2. LOFEPRAMINE [Concomitant]

REACTIONS (3)
  - FEAR [None]
  - SELF-INJURIOUS IDEATION [None]
  - SUICIDAL BEHAVIOUR [None]
